FAERS Safety Report 8364096-7 (Version None)
Quarter: 2012Q2

REPORT INFORMATION
  Report Type: 
  Country: None (occurrence: None)
  Receive Date: 20120516
  Receipt Date: 20120312
  Transmission Date: 20120825
  Serious: No
  Sender: FDA-Public Use
  Company Number: US-ALEXION-A201200468

PATIENT
  Sex: Male
  Weight: 82.993 kg

DRUGS (2)
  1. PREDNISONE TAB [Suspect]
     Dosage: UNK
  2. SOLIRIS [Suspect]
     Indication: HAEMOLYTIC URAEMIC SYNDROME
     Dosage: UNK
     Route: 042

REACTIONS (3)
  - WEIGHT DECREASED [None]
  - CATARACT [None]
  - BLOOD PRESSURE INCREASED [None]
